FAERS Safety Report 6920687-9 (Version None)
Quarter: 2010Q3

REPORT INFORMATION
  Report Type: 
  Country: None (occurrence: None)
  Receive Date: 20100812
  Receipt Date: 20100802
  Transmission Date: 20110219
  Serious: Yes (Death, Other)
  Sender: FDA-Public Use
  Company Number: FR-CUBIST-2010S1001107

PATIENT
  Age: 83 Year
  Sex: Male
  Weight: 99 kg

DRUGS (2)
  1. CUBICIN [Suspect]
     Indication: ENDOCARDITIS
  2. RIFAMPIN [Concomitant]
     Indication: PRODUCT USED FOR UNKNOWN INDICATION

REACTIONS (2)
  - CEREBROVASCULAR DISORDER [None]
  - RENAL FAILURE ACUTE [None]
